FAERS Safety Report 7194469-X (Version None)
Quarter: 2010Q4

REPORT INFORMATION
  Report Type: 
  Country: None (occurrence: None)
  Receive Date: 20101223
  Receipt Date: 20091021
  Transmission Date: 20110411
  Serious: Yes (Disabling)
  Sender: FDA-Public Use
  Company Number: NO-ASTRAZENECA-2009SE22112

PATIENT
  Sex: Female

DRUGS (6)
  1. SELO-ZOK [Suspect]
     Indication: PRODUCT USED FOR UNKNOWN INDICATION
     Route: 048
     Dates: start: 20060101
  2. SELO-ZOK [Suspect]
     Route: 048
  3. CIPROFLOXACIN [Suspect]
     Indication: PYELONEPHRITIS
     Route: 048
     Dates: start: 20080125, end: 20080131
  4. PREDNISOLONE [Concomitant]
     Dates: start: 19980101
  5. GLUCOSAMINE [Concomitant]
  6. SOMAC [Concomitant]
     Dates: start: 20070101

REACTIONS (3)
  - AGEUSIA [None]
  - ANOSMIA [None]
  - QUALITY OF LIFE DECREASED [None]
